FAERS Safety Report 8216873-0 (Version None)
Quarter: 2012Q1

REPORT INFORMATION
  Report Type: 
  Country: None (occurrence: None)
  Receive Date: 20120316
  Receipt Date: 20120307
  Transmission Date: 20120608
  Serious: Yes (Hospitalization, Other)
  Sender: FDA-Public Use
  Company Number: US-ASTRAZENECA-2010SE60931

PATIENT
  Age: 58 Year
  Sex: Female

DRUGS (18)
  1. TEMEZAPINE [Concomitant]
  2. ADVAIR DISKUS 100/50 [Concomitant]
  3. SPRIVIA [Concomitant]
  4. SEROQUEL [Suspect]
     Route: 048
  5. SEROQUEL [Suspect]
     Route: 048
  6. METOPROLOL SUCCINATE [Suspect]
     Route: 048
  7. METFORMIN HYDROCHLORIDE [Concomitant]
  8. ALBUTEROL [Concomitant]
  9. HYDROCHLOROTHIAZIDE [Concomitant]
  10. TRAZODONE HCL [Concomitant]
  11. PAROTINA [Concomitant]
  12. RANDITINE [Concomitant]
  13. LEVOTHYROXINE SODIUM [Concomitant]
  14. SEROQUEL [Suspect]
     Indication: BIPOLAR DISORDER
     Route: 048
  15. PRAVACHOL [Concomitant]
  16. BENZONATE [Concomitant]
  17. PRAVASTATIN [Concomitant]
  18. PANTOPRAZOLE [Concomitant]

REACTIONS (17)
  - COMA [None]
  - POST-TRAUMATIC STRESS DISORDER [None]
  - GENERALISED ANXIETY DISORDER [None]
  - CARDIOMYOPATHY [None]
  - TYPE 2 DIABETES MELLITUS [None]
  - FALL [None]
  - CHRONIC OBSTRUCTIVE PULMONARY DISEASE [None]
  - DEPRESSION [None]
  - HYPOTHYROIDISM [None]
  - HYPERTENSION [None]
  - RESPIRATORY FAILURE [None]
  - FOOT FRACTURE [None]
  - ANKLE FRACTURE [None]
  - VENTRICULAR TACHYCARDIA [None]
  - LETHARGY [None]
  - DRUG INTOLERANCE [None]
  - SOMNOLENCE [None]
